FAERS Safety Report 4546970-2 (Version None)
Quarter: 2005Q1

REPORT INFORMATION
  Report Type: 
  Country: None (occurrence: None)
  Receive Date: 20050106
  Receipt Date: 20050104
  Transmission Date: 20050727
  Serious: Yes (Hospitalization)
  Sender: FDA-Public Use
  Company Number: FR-MERCK-0501FRA00013

PATIENT
  Age: 81 Year
  Sex: Male

DRUGS (4)
  1. NOROXIN [Suspect]
     Indication: CYSTITIS
     Route: 048
     Dates: start: 20041116, end: 20041118
  2. CLOPIDOGREL BISULFATE [Concomitant]
     Indication: THROMBOSIS PROPHYLAXIS
     Route: 048
  3. LOSARTAN POTASSIUM [Concomitant]
     Indication: HYPERTENSION
     Route: 048
  4. PRAVASTATIN SODIUM [Concomitant]
     Indication: HYPERCHOLESTEROLAEMIA
     Route: 048

REACTIONS (3)
  - DIARRHOEA [None]
  - HYPOTENSION [None]
  - VOMITING [None]
